FAERS Safety Report 7693316-7 (Version None)
Quarter: 2011Q3

REPORT INFORMATION
  Report Type: 
  Country: None (occurrence: None)
  Receive Date: 20110819
  Receipt Date: 20110817
  Transmission Date: 20111222
  Serious: Yes (Death)
  Sender: FDA-Public Use
  Company Number: PHHY2011IN74004

PATIENT

DRUGS (1)
  1. GLEEVEC [Suspect]
     Dosage: UNK
     Route: 048
     Dates: start: 20101006

REACTIONS (2)
  - DYSPNOEA [None]
  - DEATH [None]
